FAERS Safety Report 6998261-8 (Version None)
Quarter: 2010Q3

REPORT INFORMATION
  Report Type: 
  Country: None (occurrence: None)
  Receive Date: 20100920
  Receipt Date: 20100428
  Transmission Date: 20110219
  Serious: No
  Sender: FDA-Public Use
  Company Number: US-ASTRAZENECA-2010SE16812

PATIENT
  Age: 20 Year
  Sex: Female
  Weight: 75.3 kg

DRUGS (5)
  1. SEROQUEL XR [Suspect]
     Indication: BIPOLAR I DISORDER
     Route: 048
     Dates: start: 20100201
  2. SEROQUEL XR [Suspect]
     Indication: BIPOLAR DISORDER
     Route: 048
     Dates: start: 20100201
  3. SEROQUEL XR [Suspect]
     Route: 048
     Dates: start: 20100404
  4. SEROQUEL XR [Suspect]
     Route: 048
     Dates: start: 20100404
  5. FORMOTEROL FUMARATE [Concomitant]

REACTIONS (3)
  - LIBIDO DECREASED [None]
  - PAIN IN EXTREMITY [None]
  - SOMNOLENCE [None]
